FAERS Safety Report 7581271-X (Version None)
Quarter: 2011Q2

REPORT INFORMATION
  Report Type: 
  Country: None (occurrence: None)
  Receive Date: 20110629
  Receipt Date: 20110622
  Transmission Date: 20111010
  Serious: Yes (Death)
  Sender: FDA-Public Use
  Company Number: JP-CELGENEUS-087-21880-11043491

PATIENT
  Sex: Male

DRUGS (21)
  1. SULFAMETHOXAZOLE [Concomitant]
     Indication: PROPHYLAXIS
     Dosage: 1 TABLET
     Route: 048
     Dates: start: 20110218, end: 20110508
  2. REBAMIPIDE [Concomitant]
     Indication: PROPHYLAXIS
     Dosage: 1 TABLET
     Route: 048
     Dates: start: 20110318, end: 20110508
  3. DEXAMETHASONE [Suspect]
     Indication: MULTIPLE MYELOMA
     Dosage: 20 MILLIGRAM
     Route: 048
     Dates: start: 20110221, end: 20110224
  4. SELBEX [Concomitant]
     Dosage: 100 MILLIGRAM
     Route: 048
     Dates: start: 20110218, end: 20110317
  5. REVLIMID [Suspect]
     Indication: MULTIPLE MYELOMA
     Dosage: 10 MILLIGRAM
     Route: 048
     Dates: start: 20110218, end: 20110310
  6. LASIX [Concomitant]
     Dosage: 20 MILLIGRAM
     Route: 048
     Dates: start: 20110218, end: 20110317
  7. ASPARA POTASSIUM [Concomitant]
     Dosage: 1200 MILLIGRAM
     Route: 048
     Dates: start: 20110218, end: 20110317
  8. ITRACONAZOLE [Concomitant]
     Indication: PROPHYLAXIS
     Dosage: 200 MILLIGRAM
     Route: 048
     Dates: start: 20110303, end: 20110310
  9. REVLIMID [Suspect]
     Route: 048
     Dates: start: 20110318, end: 20110407
  10. FOY [Suspect]
     Route: 065
     Dates: start: 20110508
  11. ASPIRIN [Concomitant]
     Indication: ANGINA PECTORIS
     Dosage: 100 MILLIGRAM
     Route: 048
     Dates: start: 20110218, end: 20110508
  12. DILTIAZEM HCL [Concomitant]
     Indication: ANGINA PECTORIS
     Dosage: 100 MILLIGRAM
     Route: 048
     Dates: start: 20110218, end: 20110317
  13. BONALON [Concomitant]
     Dosage: 35 MILLIGRAM
     Route: 048
     Dates: start: 20110218, end: 20110317
  14. TRICHLORMETHIAZIDE [Concomitant]
     Dosage: 2 MILLIGRAM
     Route: 048
     Dates: start: 20110218, end: 20110317
  15. ALOSENN [Concomitant]
     Dosage: 1 GRAM
     Route: 048
     Dates: start: 20110224, end: 20110317
  16. RABEPRAZOLE SODIUM [Concomitant]
     Indication: PROPHYLAXIS
     Dosage: 10 MILLIGRAM
     Route: 048
     Dates: start: 20110318, end: 20110508
  17. REVLIMID [Suspect]
     Dosage: 10 MILLIGRAM
     Route: 048
     Dates: start: 20110415, end: 20110505
  18. METHYCOBAL [Concomitant]
     Dosage: 1000 MICROGRAM
     Route: 048
     Dates: start: 20110218, end: 20110508
  19. ALLOPURINOL [Concomitant]
     Dosage: 100 MILLIGRAM
     Route: 048
     Dates: start: 20110218, end: 20110317
  20. VFEND [Concomitant]
     Indication: PROPHYLAXIS
     Dosage: 300 MILLIGRAM
     Route: 048
     Dates: start: 20110311, end: 20110508
  21. CORTRIL [Concomitant]
     Dosage: 15 MILLIGRAM
     Route: 048
     Dates: start: 20110318, end: 20110508

REACTIONS (9)
  - HYPOXIA [None]
  - PNEUMONIA [None]
  - ANAEMIA [None]
  - RENAL FAILURE ACUTE [None]
  - THROMBOCYTOPENIA [None]
  - DIARRHOEA [None]
  - DISSEMINATED INTRAVASCULAR COAGULATION [None]
  - NEUTROPENIA [None]
  - BRONCHOPNEUMONIA [None]
